FAERS Safety Report 24140668 (Version 3)
Quarter: 2024Q3

REPORT INFORMATION
  Report Type: Spontaneous
  Country: IT (occurrence: IT)
  Receive Date: 20240726
  Receipt Date: 20240822
  Transmission Date: 20241016
  Serious: Yes (Death, Life-Threatening, Hospitalization, Other)
  Sender: BRISTOL MYERS SQUIBB
  Company Number: None

PATIENT
  Age: 70 Year
  Sex: Male
  Weight: 83 kg

DRUGS (4)
  1. NULOJIX [Suspect]
     Active Substance: BELATACEPT
     Indication: Renal transplant
     Dosage: 500 MG EVERY 15 DAYS FOR 3 CONSECUTIVE TIMES AND THEN MONTHLY
     Route: 042
     Dates: start: 20230722, end: 20240703
  2. NULOJIX [Suspect]
     Active Substance: BELATACEPT
     Dosage: 500 MG EVERY 15 DAYS FOR 3 CONSECUTIVE TIMES AND THEN MONTHLY
     Route: 042
     Dates: start: 20230722, end: 20240703
  3. ACIDO MICOFENOLICO [MYCOPHENOLIC ACID] [Concomitant]
     Indication: Renal transplant
     Dosage: 360 MG X 2/DAY
     Route: 048
  4. MEDROL [Concomitant]
     Active Substance: METHYLPREDNISOLONE
     Indication: Renal transplant
     Dosage: 4 MG/DAY
     Route: 048

REACTIONS (5)
  - Epstein-Barr virus infection [Fatal]
  - Off label use [Unknown]
  - Post transplant lymphoproliferative disorder [Fatal]
  - Multiple organ dysfunction syndrome [Fatal]
  - Diffuse large B-cell lymphoma [Fatal]

NARRATIVE: CASE EVENT DATE: 20240703
